FAERS Safety Report 22612469 (Version 1)
Quarter: 2023Q2

REPORT INFORMATION
  Report Type: Spontaneous
  Country: US (occurrence: US)
  Receive Date: 20230617
  Receipt Date: 20230617
  Transmission Date: 20230722
  Serious: Yes (Other)
  Sender: FDA-Public Use
  Company Number: US-MLMSERVICE-20230601-4319133-1

PATIENT
  Age: 50 Year
  Sex: Female

DRUGS (3)
  1. BUPIVACAINE HYDROCHLORIDE [Suspect]
     Active Substance: BUPIVACAINE HYDROCHLORIDE
     Indication: Abdominal pain
     Dosage: UNK (SYNCHROMED-II PUMP(HIGHER CONCENTRATION ))
     Route: 037
  2. CLONIDINE [Suspect]
     Active Substance: CLONIDINE
     Indication: Abdominal pain
     Dosage: UNK(SYNCHROMED-II PUMP(HIGHER CONCENTRATION ))
     Route: 037
  3. FENTANYL [Suspect]
     Active Substance: FENTANYL
     Indication: Abdominal pain
     Dosage: UNK(SYNCHROMED-II PUMP(HIGHER CONCENTRATION ))
     Route: 037

REACTIONS (3)
  - Somnolence [Recovering/Resolving]
  - Accidental overdose [Recovered/Resolved]
  - Device programming error [Recovered/Resolved]
